FAERS Safety Report 12044935 (Version 1)
Quarter: 2016Q1

REPORT INFORMATION
  Report Type: Report from Study
  Country: US (occurrence: US)
  Receive Date: 20160208
  Receipt Date: 20160208
  Transmission Date: 20160526
  Serious: No
  Sender: FDA-Public Use
  Company Number: US-ABBVIE-15P-163-1414288-00

PATIENT
  Age: 31 Year
  Sex: Male

DRUGS (3)
  1. HUMIRA [Suspect]
     Active Substance: ADALIMUMAB
     Indication: PSORIASIS
     Route: 058
     Dates: start: 20090101, end: 20130101
  2. HUMIRA [Suspect]
     Active Substance: ADALIMUMAB
     Dosage: SINGLE DOSE
     Route: 058
     Dates: start: 20140601, end: 20140601
  3. HUMIRA [Suspect]
     Active Substance: ADALIMUMAB
     Dosage: SINGLE DOSE
     Route: 058
     Dates: start: 20150608, end: 20150608

REACTIONS (4)
  - Psoriasis [Unknown]
  - Sinus congestion [Unknown]
  - Nasopharyngitis [Unknown]
  - Psoriasis [Recovered/Resolved]

NARRATIVE: CASE EVENT DATE: 20150601
